FAERS Safety Report 19278509 (Version 1)
Quarter: 2021Q2

REPORT INFORMATION
  Report Type: Spontaneous
  Country: JP (occurrence: JP)
  Receive Date: 20210520
  Receipt Date: 20210520
  Transmission Date: 20210717
  Serious: Yes (Other)
  Sender: FDA-Public Use
  Company Number: JP-CHEPLA-C20212437

PATIENT
  Age: 81 Year
  Sex: Female
  Weight: 41 kg

DRUGS (12)
  1. AMLODIPINE [Concomitant]
     Active Substance: AMLODIPINE BESYLATE
  2. CEFTRIAXONE NA [Suspect]
     Active Substance: CEFTRIAXONE
     Dates: start: 20210412, end: 20210422
  3. PREDONINE [Concomitant]
     Active Substance: PREDNISOLONE
  4. RITUXAN [Concomitant]
     Active Substance: RITUXIMAB
  5. FEXOFENADINE HYDROCHLORIDE. [Concomitant]
     Active Substance: FEXOFENADINE HYDROCHLORIDE
  6. SAMTIREL [Concomitant]
     Active Substance: ATOVAQUONE
  7. PREDNISOLONE. [Concomitant]
     Active Substance: PREDNISOLONE
  8. SAIREITO [Concomitant]
     Active Substance: HERBALS
  9. DENOSINE [GANCICLOVIR] [Suspect]
     Active Substance: GANCICLOVIR
     Indication: CYTOMEGALOVIRUS INFECTION
     Dosage: 50 MG, EVERY TIME AFTER DIALYSIS
     Dates: start: 20210406, end: 20210417
  10. SOLU?MEDROL [Concomitant]
     Active Substance: METHYLPREDNISOLONE SODIUM SUCCINATE
  11. NEXIUM [Concomitant]
     Active Substance: ESOMEPRAZOLE MAGNESIUM
  12. ATARAX?P [Concomitant]
     Active Substance: HYDROXYZINE HYDROCHLORIDE

REACTIONS (2)
  - Encephalitis [Recovering/Resolving]
  - Hyperkinesia [Recovering/Resolving]

NARRATIVE: CASE EVENT DATE: 20210419
